FAERS Safety Report 5750341-0 (Version None)
Quarter: 2008Q2

REPORT INFORMATION
  Report Type: 
  Country: None (occurrence: None)
  Receive Date: 20080528
  Receipt Date: 20080521
  Transmission Date: 20081010
  Serious: Yes (Hospitalization)
  Sender: FDA-Public Use
  Company Number: US-JNJFOC-20080501681

PATIENT
  Sex: Female

DRUGS (1)
  1. DOXORUBICIN HCL [Suspect]
     Indication: OVARIAN CANCER
     Dosage: SECOND INFUSION
     Route: 042

REACTIONS (4)
  - ABDOMINAL PAIN [None]
  - BURNING SENSATION [None]
  - ENTERITIS [None]
  - THROAT TIGHTNESS [None]
